FAERS Safety Report 8611463-X (Version None)
Quarter: 2012Q3

REPORT INFORMATION
  Report Type: 
  Country: None (occurrence: None)
  Receive Date: 20120822
  Receipt Date: 20120814
  Transmission Date: 20120928
  Serious: Yes (Hospitalization, Other)
  Sender: FDA-Public Use
  Company Number: BE-ABBOTT-12P-013-0890059-00

PATIENT
  Sex: Male

DRUGS (1)
  1. HUMIRA [Suspect]
     Indication: PSORIATIC ARTHROPATHY

REACTIONS (4)
  - RESPIRATORY TRACT INFECTION [None]
  - LYMPH NODE TUBERCULOSIS [None]
  - CAROTID ARTERY THROMBOSIS [None]
  - PULMONARY TUBERCULOSIS [None]
